FAERS Safety Report 9913520 (Version 1)
Quarter: 2014Q1

REPORT INFORMATION
  Report Type: Spontaneous
  Country: PK (occurrence: None)
  Receive Date: 20140218
  Receipt Date: 20140218
  Transmission Date: 20141002
  Serious: Yes (Hospitalization)
  Sender: FDA-Public Use
  Company Number: 1333156

PATIENT
  Age: 10 Year
  Sex: Male

DRUGS (1)
  1. HYDROCORTISONE [Suspect]
     Indication: ASTHMA
     Route: 030

REACTIONS (9)
  - Drug hypersensitivity [None]
  - Pallor [None]
  - Headache [None]
  - Palpitations [None]
  - Hypotension [None]
  - Tachycardia [None]
  - Nausea [None]
  - Vomiting [None]
  - Abdominal pain [None]
